FAERS Safety Report 11157470 (Version 1)
Quarter: 2015Q2

REPORT INFORMATION
  Report Type: Spontaneous
  Country: US (occurrence: US)
  Receive Date: 20150603
  Receipt Date: 20150603
  Transmission Date: 20150821
  Serious: Yes (Hospitalization)
  Sender: FDA-Public Use
  Company Number: US-JNJFOC-20150514799

PATIENT
  Age: 52 Year
  Sex: Male

DRUGS (1)
  1. LISTERINE ORIGINAL [Suspect]
     Active Substance: EUCALYPTOL\MENTHOL\METHYL SALICYLATE\THYMOL
     Indication: PRODUCT USED FOR UNKNOWN INDICATION
     Dosage: BOTTLE OF LISTERINE DAILY FOR THE PAST TWO MONTHS
     Route: 065

REACTIONS (3)
  - Metabolic acidosis [Unknown]
  - Acute kidney injury [Unknown]
  - Intentional product misuse [Unknown]
